FAERS Safety Report 10396114 (Version 1)
Quarter: 2014Q3

REPORT INFORMATION
  Report Type: Spontaneous
  Country: US (occurrence: None)
  Receive Date: 20140815
  Receipt Date: 20140815
  Transmission Date: 20150326
  Serious: Yes (Other)
  Sender: FDA-Public Use
  Company Number: None

PATIENT
  Age: 81 Year
  Sex: Male
  Weight: 61.24 kg

DRUGS (1)
  1. CIPROFLOXACIN. [Suspect]
     Active Substance: CIPROFLOXACIN
     Indication: BACTERAEMIA
     Dosage: 2 PER DAY
     Route: 048
     Dates: start: 20140319, end: 20140420

REACTIONS (3)
  - Splinter [None]
  - Muscle spasms [None]
  - Burning sensation [None]

NARRATIVE: CASE EVENT DATE: 20140320
